FAERS Safety Report 23657304 (Version 1)
Quarter: 2024Q1

REPORT INFORMATION
  Report Type: Spontaneous
  Country: PL (occurrence: None)
  Receive Date: 20240321
  Receipt Date: 20240321
  Transmission Date: 20240410
  Serious: Yes (Other)
  Sender: FDA-Public Use
  Company Number: 2024A066171

PATIENT
  Sex: Female

DRUGS (1)
  1. DAPAGLIFLOZIN [Suspect]
     Active Substance: DAPAGLIFLOZIN
     Dosage: 10.0MG UNKNOWN
     Route: 048

REACTIONS (11)
  - Atrial fibrillation [Unknown]
  - Feeling abnormal [Unknown]
  - Arthralgia [Unknown]
  - Myalgia [Unknown]
  - Arrhythmia [Unknown]
  - Dry mouth [Unknown]
  - Back pain [Unknown]
  - Pain in extremity [Unknown]
  - Feeling cold [Unknown]
  - Oliguria [Unknown]
  - Dysbiosis [Unknown]
